FAERS Safety Report 5018780-3 (Version None)
Quarter: 2006Q2

REPORT INFORMATION
  Report Type: 
  Country: None (occurrence: None)
  Receive Date: 20060531
  Receipt Date: 20060522
  Transmission Date: 20061013
  Serious: Yes (Other)
  Sender: FDA-Public Use
  Company Number: 200612136BCC

PATIENT
  Sex: Female
  Weight: 69.8539 kg

DRUGS (1)
  1. ASPIRIN [Suspect]
     Dosage: QD, ORAL
     Route: 048

REACTIONS (2)
  - OCULAR VASCULAR DISORDER [None]
  - VISUAL DISTURBANCE [None]
